FAERS Safety Report 8515135-1 (Version None)
Quarter: 2012Q3

REPORT INFORMATION
  Report Type: 
  Country: None (occurrence: None)
  Receive Date: 20120705
  Receipt Date: 20120625
  Transmission Date: 20120928
  Serious: Yes (Other)
  Sender: FDA-Public Use
  Company Number: AUR-APL-2012-02804

PATIENT
  Age: 34 Year
  Sex: Male

DRUGS (1)
  1. FLUOXETINE [Suspect]
     Indication: MAJOR DEPRESSION
     Dosage: 20MG/DAY

REACTIONS (7)
  - AGGRESSION [None]
  - TEMPOROMANDIBULAR JOINT SYNDROME [None]
  - HOMICIDAL IDEATION [None]
  - BRUXISM [None]
  - FEELING ABNORMAL [None]
  - SUICIDAL IDEATION [None]
  - HEADACHE [None]
